FAERS Safety Report 6212387-8 (Version None)
Quarter: 2009Q2

REPORT INFORMATION
  Report Type: 
  Country: None (occurrence: None)
  Receive Date: 20090603
  Receipt Date: 20070514
  Transmission Date: 20091009
  Serious: Yes (Other)
  Sender: FDA-Public Use
  Company Number: US-ASTRAZENECA-2006UW23344

PATIENT
  Age: 13495 Day
  Sex: Female
  Weight: 146.5 kg

DRUGS (10)
  1. SEROQUEL [Suspect]
     Indication: SCHIZOPHRENIA
     Route: 048
     Dates: start: 20031001, end: 20050801
  2. SEROQUEL [Suspect]
     Indication: SLEEP DISORDER
     Route: 048
     Dates: start: 20031001, end: 20050801
  3. SEROQUEL [Suspect]
     Dosage: 600 - 1200 MG DAILY
     Route: 048
     Dates: start: 20031103, end: 20050718
  4. SEROQUEL [Suspect]
     Dosage: 600 - 1200 MG DAILY
     Route: 048
     Dates: start: 20031103, end: 20050718
  5. LORTAB [Concomitant]
     Indication: BACK PAIN
     Dosage: 40 / 2000 - 40 / 2600 MG DAILY
     Route: 048
     Dates: start: 20020418
  6. DEPAKOTE [Concomitant]
     Indication: HEADACHE
     Dates: start: 20040816
  7. LEXAPRO [Concomitant]
     Dosage: 10 - 20 MG DAILY
     Dates: start: 20040816
  8. KLONOPIN [Concomitant]
     Indication: ANXIETY
     Dosage: 2 - 6 MG DAILY
     Route: 048
     Dates: start: 20040611
  9. PREVACID [Concomitant]
     Dates: start: 20010828
  10. ZANAFLEX [Concomitant]
     Dates: start: 20031103

REACTIONS (3)
  - DIABETES MELLITUS [None]
  - DIABETIC NEUROPATHY [None]
  - TYPE 2 DIABETES MELLITUS [None]
